FAERS Safety Report 12428795 (Version 1)
Quarter: 2016Q2

REPORT INFORMATION
  Report Type: Report from Study
  Country: GR (occurrence: GR)
  Receive Date: 20160602
  Receipt Date: 20160602
  Transmission Date: 20160815
  Serious: Yes (Other)
  Sender: FDA-Public Use
  Company Number: PHHY2016GR075333

PATIENT
  Age: 66 Year
  Sex: Female

DRUGS (2)
  1. GLIVEC [Suspect]
     Active Substance: IMATINIB MESYLATE
     Indication: CHRONIC MYELOID LEUKAEMIA
     Route: 065
  2. TASIGNA [Suspect]
     Active Substance: NILOTINIB
     Indication: CHRONIC MYELOID LEUKAEMIA
     Dosage: 800 MG, UNK
     Route: 065

REACTIONS (7)
  - Arrhythmia [Unknown]
  - Atrial fibrillation [Unknown]
  - Cardiac arrest [Unknown]
  - Tachycardia [Unknown]
  - Nervous system disorder [Unknown]
  - Toxic neuropathy [Unknown]
  - Maculopathy [Unknown]
